FAERS Safety Report 6199159-8 (Version None)
Quarter: 2009Q2

REPORT INFORMATION
  Report Type: 
  Country: None (occurrence: None)
  Receive Date: 20090522
  Receipt Date: 20090219
  Transmission Date: 20091009
  Serious: No
  Sender: FDA-Public Use
  Company Number: A0769522A

PATIENT
  Age: 43 Year
  Sex: Female

DRUGS (4)
  1. VERAMYST [Suspect]
     Dosage: 27.5MG PER DAY
     Route: 045
     Dates: start: 20081001
  2. SINGULAIR [Concomitant]
  3. GEODON [Concomitant]
  4. HALDOL [Concomitant]

REACTIONS (1)
  - EPISTAXIS [None]
